FAERS Safety Report 5277733-0 (Version None)
Quarter: 2007Q1

REPORT INFORMATION
  Report Type: 
  Country: None (occurrence: None)
  Receive Date: 20070327
  Receipt Date: 20070315
  Transmission Date: 20070707
  Serious: Yes (Other)
  Sender: FDA-Public Use
  Company Number: AU-PFIZER INC-2007020546

PATIENT
  Age: 78 Year
  Sex: Male

DRUGS (1)
  1. LIPITOR [Suspect]
     Dosage: DAILY DOSE:40MG

REACTIONS (3)
  - GAIT DISTURBANCE [None]
  - MUSCLE DISORDER [None]
  - MYALGIA [None]
